FAERS Safety Report 4984941-2 (Version None)
Quarter: 2006Q2

REPORT INFORMATION
  Report Type: 
  Country: None (occurrence: None)
  Receive Date: 20060427
  Receipt Date: 20060207
  Transmission Date: 20061013
  Serious: Yes (Hospitalization)
  Sender: FDA-Public Use
  Company Number: US-GILEAD-2006-0009198

PATIENT
  Sex: Male

DRUGS (25)
  1. TRUVADA [Suspect]
     Indication: HIV INFECTION
     Route: 048
     Dates: start: 20060202
  2. TRUVADA [Suspect]
     Route: 048
     Dates: start: 20050701, end: 20060124
  3. BLINDED UK-427,857 [Suspect]
     Indication: HIV INFECTION
     Route: 048
     Dates: start: 20060202
  4. BLINDED UK-427,857 [Suspect]
     Route: 048
     Dates: start: 20060123, end: 20060124
  5. VIRAMUNE [Suspect]
     Indication: HIV INFECTION
     Route: 048
     Dates: start: 20060123, end: 20060124
  6. FUZEON [Suspect]
     Indication: HIV INFECTION
     Route: 058
     Dates: start: 20060202
  7. FUZEON [Suspect]
     Route: 058
     Dates: start: 20060123, end: 20060124
  8. KALETRA [Suspect]
     Indication: HIV INFECTION
     Route: 048
     Dates: start: 20060202
  9. KALETRA [Suspect]
     Route: 048
     Dates: start: 20060123, end: 20060124
  10. ATAZANAVIR [Concomitant]
     Route: 048
     Dates: start: 20050701, end: 20060122
  11. NORVIR [Concomitant]
     Route: 048
     Dates: start: 20050701, end: 20060122
  12. AZT [Concomitant]
     Route: 048
     Dates: start: 20050701, end: 20060122
  13. ACYCLOVIR [Concomitant]
     Route: 048
     Dates: start: 20020913
  14. AVODART [Concomitant]
     Route: 048
     Dates: start: 20050601
  15. TAMSULOSIN HCL [Concomitant]
     Indication: BLADDER DISORDER
     Route: 048
     Dates: start: 20050201
  16. PROMETHAZINE [Concomitant]
     Route: 048
     Dates: start: 20050516
  17. FAMOTIDINE [Concomitant]
     Indication: NAUSEA
     Route: 048
     Dates: start: 20031107
  18. SYNTHROID [Concomitant]
     Indication: HYPOTHYROIDISM
     Route: 048
     Dates: start: 20000830
  19. OXYCODONE HCL [Concomitant]
     Route: 048
     Dates: start: 20041029
  20. DOCUSATE [Concomitant]
     Route: 048
     Dates: start: 20041101
  21. DAPSONE [Concomitant]
     Route: 048
     Dates: start: 20050318
  22. ENSURE PLUS [Concomitant]
     Route: 048
     Dates: start: 20050513
  23. DIAZEPAM [Concomitant]
     Route: 048
     Dates: start: 20010101
  24. FENTANYL [Concomitant]
     Route: 062
     Dates: start: 20051222
  25. KEFLEX [Concomitant]
     Route: 048
     Dates: start: 20060106, end: 20060114

REACTIONS (6)
  - CONDITION AGGRAVATED [None]
  - DIZZINESS [None]
  - NEUROPATHY PERIPHERAL [None]
  - PULMONARY HYPERTENSION [None]
  - RHABDOMYOLYSIS [None]
  - STEVENS-JOHNSON SYNDROME [None]
